FAERS Safety Report 8120560-7 (Version None)
Quarter: 2012Q1

REPORT INFORMATION
  Report Type: 
  Country: None (occurrence: None)
  Receive Date: 20120207
  Receipt Date: 20120206
  Transmission Date: 20120608
  Serious: Yes (Death)
  Sender: FDA-Public Use
  Company Number: US-B.I. PHARMACEUTICALS,INC./RIDGEFIELD-2012-BP-02302BP

PATIENT
  Age: 82 Year
  Sex: Male

DRUGS (5)
  1. ATENOLOL [Concomitant]
     Dosage: 1 MG
     Route: 048
  2. PRADAXA [Suspect]
     Indication: ATRIAL FIBRILLATION
     Dosage: 300 MG
     Route: 048
     Dates: start: 20110701
  3. SIMVASTATIN [Concomitant]
     Dosage: 80 MG
     Route: 048
  4. LISINOPRIL [Concomitant]
     Dosage: 10 MG
     Route: 048
  5. OMEPRAZOLE [Concomitant]
     Dosage: 20 MG
     Route: 048

REACTIONS (2)
  - PNEUMONIA [None]
  - TRANSIENT ISCHAEMIC ATTACK [None]
